FAERS Safety Report 9408859 (Version 2)
Quarter: 2013Q3

REPORT INFORMATION
  Report Type: Spontaneous
  Country: GB (occurrence: GB)
  Receive Date: 20130719
  Receipt Date: 20130812
  Transmission Date: 20140515
  Serious: Yes (Other)
  Sender: FDA-Public Use
  Company Number: GB-ROCHE-1249475

PATIENT
  Sex: Male

DRUGS (3)
  1. PEGASYS [Suspect]
     Indication: HEPATITIS C
     Route: 065
  2. REBETOL [Suspect]
     Indication: HEPATITIS C
     Route: 065
  3. VICTRELIS [Concomitant]
     Dosage: 3 TABLET EACH MORNING,AFTERNOON,NIGHT
     Route: 065

REACTIONS (5)
  - Viral load decreased [Unknown]
  - Pyrexia [Recovered/Resolved]
  - Vomiting [Recovered/Resolved]
  - Nervousness [Unknown]
  - Elevated mood [Unknown]
